FAERS Safety Report 7385020-X (Version None)
Quarter: 2011Q1

REPORT INFORMATION
  Report Type: 
  Country: None (occurrence: None)
  Receive Date: 20110330
  Receipt Date: 20110315
  Transmission Date: 20110831
  Serious: Yes (Other)
  Sender: FDA-Public Use
  Company Number: CA-BAYER-2011-023011

PATIENT
  Sex: Male
  Weight: 78 kg

DRUGS (15)
  1. XARELTO [Interacting]
     Indication: KNEE ARTHROPLASTY
     Dosage: DAILY DOSE 10 MG
     Route: 048
     Dates: start: 20110302, end: 20110310
  2. AMLODIPINE [Concomitant]
     Dosage: DAILY DOSE 5 MG
  3. METFORMIN [Concomitant]
     Dosage: 500 MG, BID
  4. ASPIRIN [Suspect]
     Indication: CORONARY ARTERY DISEASE
     Dosage: DAILY DOSE 81 MG
     Route: 048
     Dates: start: 20110302, end: 20110310
  5. VITAMIN D [Concomitant]
     Dosage: DAILY DOSE 1000 U
     Route: 048
  6. TRAZODONE HCL [Concomitant]
     Dosage: DAILY DOSE 25 MG
  7. PAROXETINE HCL [Concomitant]
     Dosage: DAILY DOSE 30 MG
  8. CEFAZOLIN [Concomitant]
     Route: 042
  9. XARELTO [Interacting]
     Indication: THROMBOSIS PROPHYLAXIS
     Dosage: DAILY DOSE 10 MG
     Route: 048
     Dates: start: 20110315
  10. VITAMIN B-12 [Concomitant]
     Dosage: DAILY DOSE 100 MG
  11. DONEPEZIL HCL [Concomitant]
     Dosage: DAILY DOSE 10 MG
  12. METOPROLOL TARTRATE [Concomitant]
     Dosage: 12.5 MG, BID
  13. HYDROMORPHONE HCL [Concomitant]
     Dosage: UNK UNK, PRN
  14. CELECOXIB [Interacting]
     Dosage: 200 MG, BID
     Dates: start: 20110301, end: 20110305
  15. PRAVASTATIN [Concomitant]
     Dosage: DAILY DOSE 20 MG
     Route: 048

REACTIONS (4)
  - MELAENA [None]
  - DUODENAL ULCER [None]
  - UPPER GASTROINTESTINAL HAEMORRHAGE [None]
  - GASTRITIS [None]
